FAERS Safety Report 9097814 (Version 1)
Quarter: 2013Q1

REPORT INFORMATION
  Report Type: Spontaneous
  Country: US (occurrence: US)
  Receive Date: 20130212
  Receipt Date: 20130212
  Transmission Date: 20140127
  Serious: No
  Sender: FDA-Public Use
  Company Number: US-009507513-1302USA003575

PATIENT
  Age: 22 Year
  Sex: Female
  Weight: 100.23 kg

DRUGS (1)
  1. NEXPLANON [Suspect]
     Indication: CONTRACEPTION
     Dosage: 1 ROD, UNK
     Route: 059
     Dates: start: 20120420

REACTIONS (3)
  - Menorrhagia [Not Recovered/Not Resolved]
  - Device kink [Unknown]
  - Product quality issue [Unknown]
